FAERS Safety Report 9927321 (Version 1)
Quarter: 2014Q1

REPORT INFORMATION
  Report Type: Spontaneous
  Country: BR (occurrence: BR)
  Receive Date: 20140226
  Receipt Date: 20140226
  Transmission Date: 20141002
  Serious: Yes (Hospitalization, Other)
  Sender: FDA-Public Use
  Company Number: BR-ASTRAZENECA-2014SE11937

PATIENT
  Age: 77 Year
  Sex: Female
  Weight: 48.7 kg

DRUGS (11)
  1. OMEPRAZOLE [Suspect]
     Indication: ABDOMINAL DISCOMFORT
     Route: 048
  2. BRILINTA [Suspect]
     Indication: ISCHAEMIC HEART DISEASE PROPHYLAXIS
     Route: 048
     Dates: start: 201307
  3. BRILINTA [Suspect]
     Indication: ANGINA PECTORIS
     Route: 048
     Dates: start: 201307
  4. ASPIRINA [Concomitant]
     Indication: ANTIPLATELET THERAPY
     Route: 048
     Dates: start: 201307
  5. CONCOR [Concomitant]
     Indication: ANGINA PECTORIS
     Route: 048
     Dates: start: 201307
  6. LIPITOR [Concomitant]
     Indication: BLOOD CHOLESTEROL INCREASED
     Route: 048
     Dates: start: 201307
  7. LEVOTHYROXINE SODIUM [Concomitant]
     Indication: THYROID DISORDER
     Route: 048
  8. MONOCORDIL [Concomitant]
     Indication: ISCHAEMIC HEART DISEASE PROPHYLAXIS
     Route: 048
     Dates: start: 201309
  9. MONOCORDIL [Concomitant]
     Indication: ANGINA PECTORIS
     Route: 048
     Dates: start: 201309
  10. NAPRIX [Concomitant]
     Indication: ISCHAEMIC HEART DISEASE PROPHYLAXIS
     Route: 048
     Dates: start: 201309
  11. NAPRIX [Concomitant]
     Indication: ANGINA PECTORIS
     Route: 048
     Dates: start: 201309

REACTIONS (4)
  - Myocardial infarction [Recovered/Resolved]
  - Angina pectoris [Recovered/Resolved]
  - Haemorrhage [Recovered/Resolved]
  - Fall [Recovered/Resolved]
